FAERS Safety Report 14471719 (Version 1)
Quarter: 2018Q1

REPORT INFORMATION
  Report Type: Spontaneous
  Country: NO (occurrence: NO)
  Receive Date: 20180131
  Receipt Date: 20180131
  Transmission Date: 20180509
  Serious: Yes (Other)
  Sender: FDA-Public Use
  Company Number: NO-ELI_LILLY_AND_COMPANY-NO201801011858

PATIENT
  Age: 31 Year
  Sex: Female

DRUGS (2)
  1. ZYPREXA [Suspect]
     Active Substance: OLANZAPINE
     Indication: MANIA
     Dosage: 30 MG, DAILY
     Route: 048
     Dates: start: 201708
  2. RIVOTRIL [Concomitant]
     Active Substance: CLONAZEPAM
     Dosage: 0.3 MG, OTHER
     Route: 048

REACTIONS (4)
  - Arrhythmia [Recovering/Resolving]
  - Prescribed overdose [Unknown]
  - Bundle branch block right [Recovering/Resolving]
  - Bradycardia [Recovering/Resolving]

NARRATIVE: CASE EVENT DATE: 2017
